FAERS Safety Report 8469630-4 (Version None)
Quarter: 2012Q2

REPORT INFORMATION
  Report Type: 
  Country: None (occurrence: None)
  Receive Date: 20120626
  Receipt Date: 20120523
  Transmission Date: 20120825
  Serious: No
  Sender: FDA-Public Use
  Company Number: US-TEVA-339816USA

PATIENT
  Age: 11 Year
  Sex: Male

DRUGS (1)
  1. QNASL [Suspect]

REACTIONS (1)
  - EPISTAXIS [None]
